FAERS Safety Report 8846916 (Version 1)
Quarter: 2012Q4

REPORT INFORMATION
  Report Type: Spontaneous
  Country: US (occurrence: None)
  Receive Date: 20121016
  Receipt Date: 20121016
  Transmission Date: 20130627
  Serious: Yes (Other)
  Sender: FDA-Public Use
  Company Number: E2B_00000414

PATIENT
  Age: 53 Year
  Sex: Female
  Weight: 68.04 kg

DRUGS (1)
  1. SIMVASTATIN TABLETS, USP [Suspect]
     Indication: HIGH CHOLESTEROL
     Route: 048

REACTIONS (2)
  - Thyroid cancer [None]
  - Thyroid neoplasm [None]
